FAERS Safety Report 21906836 (Version 2)
Quarter: 2023Q1

REPORT INFORMATION
  Report Type: Spontaneous
  Country: US (occurrence: US)
  Receive Date: 20230125
  Receipt Date: 20230210
  Transmission Date: 20230418
  Serious: No
  Sender: FDA-Public Use
  Company Number: US-BRISTOL-MYERS SQUIBB COMPANY-2023-006939

PATIENT
  Age: 64 Year
  Sex: Male
  Weight: 64 kg

DRUGS (1)
  1. ABECMA [Suspect]
     Active Substance: IDECABTAGENE VICLEUCEL
     Indication: Plasma cell myeloma
     Dates: start: 20220927

REACTIONS (5)
  - Nausea [Unknown]
  - Vomiting [Unknown]
  - Aspartate aminotransferase increased [Unknown]
  - Fatigue [Unknown]
  - Tachycardia [Unknown]

NARRATIVE: CASE EVENT DATE: 20220928
